FAERS Safety Report 20967081 (Version 1)
Quarter: 2022Q2

REPORT INFORMATION
  Report Type: Spontaneous
  Country: US (occurrence: None)
  Receive Date: 20220615
  Receipt Date: 20220615
  Transmission Date: 20220720
  Serious: Yes (unspecified)
  Sender: FDA-Public Use
  Company Number: None

PATIENT
  Age: 35 Year
  Sex: Female
  Weight: 95.71 kg

DRUGS (10)
  1. PARAGARD T 380A [Suspect]
     Active Substance: COPPER
     Indication: Product used for unknown indication
  2. UNSPECIFIED INGREDIENT [Suspect]
     Active Substance: UNSPECIFIED INGREDIENT
  3. ESCITALOPRAM [Concomitant]
     Active Substance: ESCITALOPRAM OXALATE
  4. UNSPECIFIED INGREDIENT [Concomitant]
     Active Substance: UNSPECIFIED INGREDIENT
  5. OTC allergy medication (seasonally) [Concomitant]
  6. BIOTIN [Concomitant]
     Active Substance: BIOTIN
  7. VITAMIN D [Concomitant]
     Active Substance: VITAMIN D NOS
  8. VITAMINS [Concomitant]
     Active Substance: VITAMINS
  9. ACIDOPHILUS [Concomitant]
     Active Substance: LACTOBACILLUS ACIDOPHILUS
  10. omega 3 fish oil supplement [Concomitant]

REACTIONS (1)
  - Device expulsion [None]

NARRATIVE: CASE EVENT DATE: 20220605
